FAERS Safety Report 10614787 (Version 1)
Quarter: 2014Q4

REPORT INFORMATION
  Report Type: Report from Study
  Country: US (occurrence: US)
  Receive Date: 20141201
  Receipt Date: 20141201
  Transmission Date: 20150529
  Serious: Yes (Life-Threatening, Other)
  Sender: FDA-Public Use
  Company Number: US-009507513-1411USA009758

PATIENT

DRUGS (2)
  1. BEVACIZUMAB [Suspect]
     Active Substance: BEVACIZUMAB
     Indication: MALIGNANT GLIOMA
     Dosage: 10 MGLKG EVERY 14 DAYS
  2. TEMODAR [Suspect]
     Active Substance: TEMOZOLOMIDE
     Indication: MALIGNANT GLIOMA
     Dosage: 75 MG/M2/DAY
     Route: 048

REACTIONS (21)
  - Leukopenia [Unknown]
  - Large intestine perforation [Unknown]
  - Fatigue [Unknown]
  - Nausea [Unknown]
  - Thrombocytopenia [Unknown]
  - Mental impairment [Unknown]
  - Embolism [Unknown]
  - Hypertension [Unknown]
  - Stomatitis [Unknown]
  - Hypersensitivity [Unknown]
  - Lymphopenia [Unknown]
  - Anaemia [Unknown]
  - Neutropenia [Unknown]
  - Aspartate aminotransferase increased [Unknown]
  - Ventricular tachycardia [Unknown]
  - Rash pustular [Unknown]
  - Sepsis [Unknown]
  - Haemorrhage intracranial [Unknown]
  - Urinary tract infection [Unknown]
  - Wound infection [Unknown]
  - Headache [Unknown]
